FAERS Safety Report 24584860 (Version 10)
Quarter: 2025Q4

REPORT INFORMATION
  Report Type: Report from Study
  Country: JP (occurrence: JP)
  Receive Date: 20241106
  Receipt Date: 20251008
  Transmission Date: 20260117
  Serious: Yes (Hospitalization, Other)
  Sender: ROCHE
  Company Number: JP-CHUGAI-2024037151

PATIENT
  Age: 74 Year
  Sex: Female
  Weight: 50.3 kg

DRUGS (4)
  1. PIASKY [Suspect]
     Active Substance: CROVALIMAB-AKKZ
     Indication: Paroxysmal nocturnal haemoglobinuria
     Dosage: 340 MILLIGRAM, QD
     Route: 058
     Dates: start: 20241009, end: 20241101
  2. PIASKY [Suspect]
     Active Substance: CROVALIMAB-AKKZ
     Dosage: 340 MILLIGRAM, ONCE/WEEK
     Route: 058
     Dates: start: 20241015, end: 202410
  3. PIASKY [Suspect]
     Active Substance: CROVALIMAB-AKKZ
     Route: 058
     Dates: start: 20241206, end: 20250523
  4. PIASKY [Suspect]
     Active Substance: CROVALIMAB-AKKZ
     Route: 042
     Dates: start: 20241008, end: 20241008

REACTIONS (9)
  - Type III immune complex mediated reaction [Recovered/Resolved]
  - Blood creatine phosphokinase increased [Recovered/Resolved]
  - Amylase increased [Recovered/Resolved]
  - Renal impairment [Recovering/Resolving]
  - Breakthrough haemolysis [Recovered/Resolved]
  - COVID-19 [Recovered/Resolved]
  - Drug ineffective [Unknown]
  - Urticaria [Recovered/Resolved]
  - Intravascular haemolysis [Unknown]

NARRATIVE: CASE EVENT DATE: 20241018
